FAERS Safety Report 9206891 (Version 1)
Quarter: 2013Q2

REPORT INFORMATION
  Report Type: Spontaneous
  Country: US (occurrence: US)
  Receive Date: 20130403
  Receipt Date: 20130403
  Transmission Date: 20140414
  Serious: Yes (Other)
  Sender: FDA-Public Use
  Company Number: US-SANOFI-AVENTIS-2013SA034528

PATIENT
  Age: 42 Year
  Sex: Female

DRUGS (4)
  1. AUBAGIO [Suspect]
     Indication: MULTIPLE SCLEROSIS
     Route: 048
     Dates: start: 20130321
  2. KLONOPIN [Concomitant]
  3. BUSPAR [Concomitant]
  4. CYMBALTA [Concomitant]

REACTIONS (8)
  - Insomnia [Not Recovered/Not Resolved]
  - Dyspnoea [Unknown]
  - Upper respiratory tract congestion [Unknown]
  - Pulmonary congestion [Unknown]
  - Gait disturbance [Not Recovered/Not Resolved]
  - Speech disorder [Not Recovered/Not Resolved]
  - Headache [Unknown]
  - Dyskinesia [Unknown]
